FAERS Safety Report 4817605-6 (Version None)
Quarter: 2005Q4

REPORT INFORMATION
  Report Type: 
  Country: None (occurrence: None)
  Receive Date: 20051031
  Receipt Date: 20051017
  Transmission Date: 20060501
  Serious: Yes (Other)
  Sender: FDA-Public Use
  Company Number: 2005143774

PATIENT
  Sex: Female

DRUGS (1)
  1. ROLAIDS [Suspect]
     Dosage: 2-3 SOFTCHEWS DAILY, ORAL
     Route: 048

REACTIONS (1)
  - SALIVARY GLAND CALCULUS [None]
